FAERS Safety Report 11917766 (Version 1)
Quarter: 2016Q1

REPORT INFORMATION
  Report Type: Spontaneous
  Country: None (occurrence: GB)
  Receive Date: 20160114
  Receipt Date: 20160114
  Transmission Date: 20160526
  Serious: Yes (Other)
  Sender: FDA-Public Use
  Company Number: GB-MEDAC PHARMA, INC.-1046513

PATIENT
  Sex: Male

DRUGS (1)
  1. METOJECT PEN [Suspect]
     Active Substance: METHOTREXATE
     Indication: RHEUMATOID ARTHRITIS
     Route: 058

REACTIONS (2)
  - Thrombosis [Not Recovered/Not Resolved]
  - Cardiac disorder [Not Recovered/Not Resolved]
